FAERS Safety Report 5894781-8 (Version None)
Quarter: 2008Q3

REPORT INFORMATION
  Report Type: 
  Country: None (occurrence: None)
  Receive Date: 20080924
  Receipt Date: 20080617
  Transmission Date: 20090109
  Serious: No
  Sender: FDA-Public Use
  Company Number: US-ASTRAZENECA-2008UW12227

PATIENT
  Age: 52 Year
  Sex: Female
  Weight: 73 kg

DRUGS (6)
  1. SEROQUEL [Suspect]
     Indication: SLEEP DISORDER
     Route: 048
     Dates: start: 20080301
  2. SEROQUEL [Suspect]
     Route: 048
     Dates: end: 20080501
  3. LASIX [Concomitant]
     Indication: FLUID IMBALANCE
  4. AMBIEN [Concomitant]
  5. CLONAZEPAM [Concomitant]
  6. CLONIDINE [Concomitant]

REACTIONS (13)
  - DEPRESSED MOOD [None]
  - DRUG INEFFECTIVE [None]
  - DYSPHAGIA [None]
  - MALAISE [None]
  - MENSTRUATION IRREGULAR [None]
  - MOOD SWINGS [None]
  - MUSCULAR WEAKNESS [None]
  - MYALGIA [None]
  - OEDEMA PERIPHERAL [None]
  - PARAESTHESIA [None]
  - SOMNOLENCE [None]
  - VOMITING [None]
  - WEIGHT INCREASED [None]
